FAERS Safety Report 5919085-6 (Version None)
Quarter: 2008Q3

REPORT INFORMATION
  Report Type: 
  Country: None (occurrence: None)
  Receive Date: 20080909
  Receipt Date: 20061226
  Transmission Date: 20090109
  Serious: Yes (Hospitalization)
  Sender: FDA-Public Use
  Company Number: 163-20785-06111119

PATIENT
  Age: 65 Year
  Sex: Female

DRUGS (18)
  1. THALOMID [Suspect]
     Indication: MULTIPLE MYELOMA
     Dosage: 100 MG, QD, ORAL
     Route: 048
     Dates: start: 20060708, end: 20060813
  2. MELPHALAN (MELPHALAN) [Suspect]
     Indication: MULTIPLE MYELOMA
     Dosage: 200 MG/M2, 1 DOSE, INTRAVENOUS
     Route: 042
     Dates: start: 20061009, end: 20061009
  3. LOVENOX [Concomitant]
  4. ACYCLOVIR [Concomitant]
  5. NEXIUM [Concomitant]
  6. ATIVAN [Concomitant]
  7. MOBIC [Concomitant]
  8. ZYRTEC [Concomitant]
  9. AMITRIPTYLINE HYDROCHLORIDE [Concomitant]
  10. POTASSIUM (POTASSIUM) [Concomitant]
  11. FENTANYL-100 [Concomitant]
  12. PROCRIT [Concomitant]
  13. IMODIUM [Concomitant]
  14. FLAGYL [Concomitant]
  15. PRIMAXIN (PRIMAXIN) [Concomitant]
  16. VANCO (VANCOMYCIN HYDROCHLORIDE) [Concomitant]
  17. OCTREOTIDE ACETATE [Concomitant]
  18. COUMADIN [Concomitant]

REACTIONS (5)
  - DEHYDRATION [None]
  - ILEUS [None]
  - INTESTINAL OBSTRUCTION [None]
  - NAUSEA [None]
  - VOMITING [None]
